FAERS Safety Report 17877730 (Version 3)
Quarter: 2020Q3

REPORT INFORMATION
  Report Type: Report from Study
  Country: BR (occurrence: BR)
  Receive Date: 20200609
  Receipt Date: 20200910
  Transmission Date: 20201103
  Serious: Yes (Other)
  Sender: FDA-Public Use
  Company Number: PHHY2017BR163465

PATIENT
  Age: 45 Year
  Sex: Male
  Weight: 100 kg

DRUGS (8)
  1. COSENTYX [Suspect]
     Active Substance: SECUKINUMAB
     Dosage: UNK
     Route: 058
     Dates: start: 201904
  2. COSENTYX [Suspect]
     Active Substance: SECUKINUMAB
     Dosage: UNK
     Route: 065
     Dates: start: 20190913
  3. COSENTYX [Suspect]
     Active Substance: SECUKINUMAB
     Dosage: UNK
     Route: 058
     Dates: start: 20190513
  4. COSENTYX [Suspect]
     Active Substance: SECUKINUMAB
     Indication: PSORIATIC ARTHROPATHY
     Dosage: 300 MG, QMO
     Route: 058
     Dates: start: 20170826
  5. COSENTYX [Suspect]
     Active Substance: SECUKINUMAB
     Dosage: 300 MG, QMO
     Route: 058
     Dates: start: 20180826
  6. COSENTYX [Suspect]
     Active Substance: SECUKINUMAB
     Dosage: UNK
     Route: 065
     Dates: start: 20190613
  7. COSENTYX [Suspect]
     Active Substance: SECUKINUMAB
     Indication: PSORIASIS
     Dosage: 300 MG, UNK
     Route: 058
     Dates: start: 20180401
  8. COSENTYX [Suspect]
     Active Substance: SECUKINUMAB
     Indication: RHEUMATOID ARTHRITIS
     Dosage: 300 MG
     Route: 065
     Dates: start: 2017

REACTIONS (18)
  - Skin texture abnormal [Not Recovered/Not Resolved]
  - Swelling [Unknown]
  - Erythema [Not Recovered/Not Resolved]
  - Arthralgia [Unknown]
  - Psoriasis [Not Recovered/Not Resolved]
  - Skin exfoliation [Recovered/Resolved with Sequelae]
  - Skin lesion [Recovered/Resolved]
  - Joint swelling [Not Recovered/Not Resolved]
  - Emotional distress [Recovered/Resolved]
  - Product use in unapproved indication [Unknown]
  - Wound [Not Recovered/Not Resolved]
  - Dry skin [Not Recovered/Not Resolved]
  - Nervousness [Not Recovered/Not Resolved]
  - Wound secretion [Not Recovered/Not Resolved]
  - Skin discolouration [Not Recovered/Not Resolved]
  - Scar [Unknown]
  - Skin lesion [Not Recovered/Not Resolved]
  - Malaise [Unknown]

NARRATIVE: CASE EVENT DATE: 20170826
